FAERS Safety Report 7544203-6 (Version None)
Quarter: 2011Q2

REPORT INFORMATION
  Report Type: 
  Country: None (occurrence: None)
  Receive Date: 20110613
  Receipt Date: 20061130
  Transmission Date: 20111010
  Serious: Yes (Hospitalization, Other)
  Sender: FDA-Public Use
  Company Number: PHFR2003GB02455

PATIENT
  Sex: Male

DRUGS (12)
  1. AMISULPRIDE [Concomitant]
     Dosage: 200 MG, QD
     Route: 048
     Dates: start: 20031201
  2. LACTULOSE [Concomitant]
     Dosage: 3.35 G, QD
     Route: 048
     Dates: start: 20031201
  3. ZOPICLONE [Concomitant]
     Dosage: 7.5 G, QD
     Route: 048
     Dates: start: 20031201
  4. CITALOPRAM HYDROBROMIDE [Concomitant]
     Dosage: 20 MG, QD
     Route: 048
  5. IRON SUPPLEMENTS [Concomitant]
  6. CLOZAPINE [Suspect]
     Indication: SCHIZOPHRENIA
     Dosage: 450 UG, QD
     Route: 048
     Dates: start: 20020703
  7. SENNA-MINT WAF [Concomitant]
     Dosage: 15 MG, QD
     Route: 048
  8. WARFARIN SODIUM [Concomitant]
  9. OMEPRAZOLE [Concomitant]
     Dosage: 20 MG, QD
     Route: 048
     Dates: start: 20031201
  10. CLOZAPINE [Suspect]
     Route: 048
     Dates: start: 20031203
  11. FERROUS SULFATE TAB [Concomitant]
     Dosage: 200 MG, TID
     Route: 048
     Dates: start: 20031201
  12. MULTI-VITAMINS [Concomitant]
     Dosage: 1TAB/DAY
     Route: 048
     Dates: start: 20031201

REACTIONS (10)
  - PULMONARY EMBOLISM [None]
  - MALAISE [None]
  - OVERWEIGHT [None]
  - PEPTIC ULCER HAEMORRHAGE [None]
  - HAEMOGLOBIN DECREASED [None]
  - PALLOR [None]
  - HAEMORRHAGE [None]
  - IRON DEFICIENCY [None]
  - SERUM FERRITIN DECREASED [None]
  - OROPHARYNGEAL PAIN [None]
